FAERS Safety Report 16890867 (Version 1)
Quarter: 2019Q4

REPORT INFORMATION
  Report Type: Spontaneous
  Country: US (occurrence: US)
  Receive Date: 20191007
  Receipt Date: 20191007
  Transmission Date: 20200122
  Serious: Yes (Hospitalization)
  Sender: FDA-Public Use
  Company Number: US-ROCHE-2424508

PATIENT
  Age: 56 Year
  Sex: Male
  Weight: 167.98 kg

DRUGS (18)
  1. PROTONIX [Concomitant]
     Active Substance: PANTOPRAZOLE SODIUM
  2. PLAQUENIL [Concomitant]
     Active Substance: HYDROXYCHLOROQUINE SULFATE
  3. SOLU-MEDROL [Concomitant]
     Active Substance: METHYLPREDNISOLONE SODIUM SUCCINATE
  4. FENTANYL. [Concomitant]
     Active Substance: FENTANYL
  5. METHYLPREDNISOLONE. [Concomitant]
     Active Substance: METHYLPREDNISOLONE
  6. VERSED [Concomitant]
     Active Substance: MIDAZOLAM HYDROCHLORIDE
  7. DUONEB [Concomitant]
     Active Substance: ALBUTEROL SULFATE\IPRATROPIUM BROMIDE
  8. FOLIC ACID. [Concomitant]
     Active Substance: FOLIC ACID
  9. VANCOMYCIN [Concomitant]
     Active Substance: VANCOMYCIN
  10. IPRATROPIUM [Concomitant]
     Active Substance: IPRATROPIUM
  11. ALBUTEROL [SALBUTAMOL] [Concomitant]
     Active Substance: ALBUTEROL
  12. ACTEMRA [Suspect]
     Active Substance: TOCILIZUMAB
     Dosage: DOSE: 800 MG
     Route: 042
     Dates: start: 20100512
  13. GENTAMICIN. [Concomitant]
     Active Substance: GENTAMICIN
  14. NOVOLOG [Concomitant]
     Active Substance: INSULIN ASPART
  15. UNASYN [AMPICILLIN SODIUM;SULBACTAM SODIUM] [Concomitant]
  16. REMICADE [Concomitant]
     Active Substance: INFLIXIMAB
     Dosage: DOSE: 1700 MG
     Route: 042
  17. ACTEMRA [Suspect]
     Active Substance: TOCILIZUMAB
     Indication: RHEUMATOID ARTHRITIS
     Dosage: DOSE: 673 MG
     Route: 042
     Dates: start: 20100414
  18. METHOTREXATE. [Concomitant]
     Active Substance: METHOTREXATE
     Route: 030

REACTIONS (1)
  - Cardiac failure congestive [Unknown]

NARRATIVE: CASE EVENT DATE: 20160321
